FAERS Safety Report 4828528-0 (Version None)
Quarter: 2005Q4

REPORT INFORMATION
  Report Type: 
  Country: None (occurrence: None)
  Receive Date: 20051110
  Receipt Date: 20051028
  Transmission Date: 20060501
  Serious: Yes (Hospitalization, Other)
  Sender: FDA-Public Use
  Company Number: 2005150197

PATIENT
  Age: 60 Year
  Sex: Male
  Weight: 90.7 kg

DRUGS (2)
  1. AZITHROMYCIN [Suspect]
     Indication: ILL-DEFINED DISORDER
  2. HEPARIN [Suspect]
     Indication: CORONARY ARTERY DISEASE
     Dates: start: 20050215, end: 20050215

REACTIONS (3)
  - CARDIAC FAILURE CONGESTIVE [None]
  - HALLUCINATION, VISUAL [None]
  - RALES [None]
